FAERS Safety Report 6675151-1 (Version None)
Quarter: 2010Q2

REPORT INFORMATION
  Report Type: 
  Country: None (occurrence: None)
  Receive Date: 20100409
  Receipt Date: 20100330
  Transmission Date: 20101027
  Serious: Yes (Other)
  Sender: FDA-Public Use
  Company Number: US-PFIZER INC-2010041808

PATIENT
  Sex: Female
  Weight: 106 kg

DRUGS (10)
  1. LIPITOR [Suspect]
     Indication: BLOOD CHOLESTEROL INCREASED
     Dosage: 10 MG, DAILY
     Dates: end: 20100324
  2. LIPITOR [Suspect]
     Dosage: 20 MG, DAILY
     Dates: end: 20100324
  3. COUMADIN [Concomitant]
  4. ISOXSUPRINE [Concomitant]
  5. AMILORIDE [Concomitant]
  6. LISINOPRIL [Concomitant]
  7. PROPAFENONE [Concomitant]
  8. VITAMIN B COMPLEX TAB [Concomitant]
  9. CALCIUM WITH VITAMIN D [Concomitant]
  10. VITAMIN C [Concomitant]

REACTIONS (6)
  - ARTHRITIS [None]
  - BACK DISORDER [None]
  - BALANCE DISORDER [None]
  - FALL [None]
  - GAIT DISTURBANCE [None]
  - NEUROPATHY PERIPHERAL [None]
